FAERS Safety Report 18432832 (Version 3)
Quarter: 2020Q4

REPORT INFORMATION
  Report Type: Spontaneous
  Country: IN (occurrence: IN)
  Receive Date: 20201027
  Receipt Date: 20201221
  Transmission Date: 20210114
  Serious: Yes (Hospitalization, Other)
  Sender: FDA-Public Use
  Company Number: IN-DRREDDYS-USA/IND/20/0128307

PATIENT
  Age: 75 Year
  Sex: Male

DRUGS (4)
  1. TINIDAZOLE. [Concomitant]
     Active Substance: TINIDAZOLE
     Indication: SQUAMOUS CELL CARCINOMA
     Dates: start: 2018
  2. BECOSULE [Concomitant]
     Indication: SQUAMOUS CELL CARCINOMA
     Dates: start: 2018
  3. RANITIDINE. [Concomitant]
     Active Substance: RANITIDINE
     Indication: SQUAMOUS CELL CARCINOMA
     Route: 048
     Dates: start: 2018
  4. CIPROFLOXACIN. [Suspect]
     Active Substance: CIPROFLOXACIN
     Indication: SQUAMOUS CELL CARCINOMA
     Route: 048
     Dates: start: 2018, end: 2018

REACTIONS (4)
  - Dermatitis bullous [Recovered/Resolved]
  - Tooth discolouration [Recovered/Resolved]
  - Drug hypersensitivity [Recovered/Resolved]
  - Fixed eruption [Recovered/Resolved]

NARRATIVE: CASE EVENT DATE: 2018
